FAERS Safety Report 13738589 (Version 1)
Quarter: 2017Q3

REPORT INFORMATION
  Report Type: Report from Study
  Country: US (occurrence: US)
  Receive Date: 20170710
  Receipt Date: 20170710
  Transmission Date: 20171127
  Serious: No
  Sender: FDA-Public Use
  Company Number: US-SAOL THERAPEUTICS-2017SAO00189

PATIENT
  Sex: Male

DRUGS (6)
  1. COMPOUNDED BACLOFEN [Suspect]
     Active Substance: BACLOFEN
     Dosage: 193.28 ?G, \DAY
     Route: 037
     Dates: start: 20160715
  2. MORPHINE [Suspect]
     Active Substance: MORPHINE
     Dosage: 4.404 MG, \DAY
     Route: 037
     Dates: start: 20160715
  3. BUPIVACAINE. [Suspect]
     Active Substance: BUPIVACAINE
     Dosage: 11.597 MG, \DAY
     Route: 037
     Dates: start: 20160715
  4. BUPIVACAINE. [Suspect]
     Active Substance: BUPIVACAINE
     Dosage: 6.605 MG, \DAY
     Route: 037
     Dates: start: 20160715
  5. COMPOUNDED BACLOFEN [Suspect]
     Active Substance: BACLOFEN
     Dosage: 110.09 ?G, \DAY
     Route: 037
     Dates: start: 20160715
  6. MORPHINE [Suspect]
     Active Substance: MORPHINE
     Dosage: 7.731 MG, \DAY
     Route: 037
     Dates: start: 20160715

REACTIONS (1)
  - Hypoaesthesia [Recovered/Resolved]

NARRATIVE: CASE EVENT DATE: 20160928
